FAERS Safety Report 11512301 (Version 1)
Quarter: 2015Q3

REPORT INFORMATION
  Report Type: Report from Study
  Country: FR (occurrence: FR)
  Receive Date: 20150916
  Receipt Date: 20150916
  Transmission Date: 20151125
  Serious: Yes (Other)
  Sender: FDA-Public Use
  Company Number: FR-009507513-1509FRA005354

PATIENT

DRUGS (3)
  1. ATENOLOL. [Concomitant]
     Active Substance: ATENOLOL
     Dosage: 65 MG, UNK
  2. LOSARTAN POTASSIUM. [Suspect]
     Active Substance: LOSARTAN POTASSIUM
     Indication: HYPERTENSION
     Dosage: 50 MG, ONCE DAILY IF THE PATIENT WEIGHT WAS { 50 KG
     Route: 048
  3. LOSARTAN POTASSIUM. [Suspect]
     Active Substance: LOSARTAN POTASSIUM
     Indication: CARDIAC FAILURE
     Dosage: 100 MG ONCE DAILY, IF THE PATIENT WEIGHT WAS } OR EQUAL TO 50 KG
     Route: 048

REACTIONS (4)
  - Abdominal pain [Unknown]
  - Supraventricular tachycardia [Unknown]
  - Back pain [Unknown]
  - Chest pain [Unknown]
